FAERS Safety Report 7876188-7 (Version None)
Quarter: 2011Q4

REPORT INFORMATION
  Report Type: 
  Country: None (occurrence: None)
  Receive Date: 20111031
  Receipt Date: 20111020
  Transmission Date: 20120403
  Serious: Yes (Other)
  Sender: FDA-Public Use
  Company Number: FR-JNJFOC-20110812877

PATIENT
  Age: 37 Year
  Sex: Female

DRUGS (4)
  1. REMICADE [Suspect]
     Indication: CROHN'S DISEASE
     Route: 042
     Dates: start: 20100101
  2. REMICADE [Suspect]
     Dosage: 13TH INFUSION
     Route: 042
     Dates: start: 20111020
  3. HYDROCORTISONE [Concomitant]
     Indication: PREMEDICATION
     Dates: start: 20111020
  4. REMICADE [Suspect]
     Dosage: 12TH INFUSION
     Route: 042
     Dates: start: 20110801

REACTIONS (6)
  - PELVIC PAIN [None]
  - FEELING HOT [None]
  - ERYTHEMA [None]
  - BACK PAIN [None]
  - INFUSION RELATED REACTION [None]
  - PARAESTHESIA [None]
